FAERS Safety Report 13332496 (Version 2)
Quarter: 2017Q2

REPORT INFORMATION
  Report Type: Spontaneous
  Country: DE (occurrence: DE)
  Receive Date: 20170314
  Receipt Date: 20170502
  Transmission Date: 20170830
  Serious: Yes (Life-Threatening, Other)
  Sender: FDA-Public Use
  Company Number: DE-AMGEN-DEUSP2017018971

PATIENT
  Age: 56 Year
  Sex: Female
  Weight: 78 kg

DRUGS (4)
  1. CARFILZOMIB [Suspect]
     Active Substance: CARFILZOMIB
     Indication: PLASMA CELL MYELOMA
     Dosage: 20 MG/M2, DAY 1, 2, 8, 9, 15, 16
     Route: 065
     Dates: start: 20160112
  2. CARFILZOMIB [Suspect]
     Active Substance: CARFILZOMIB
     Dosage: 27 MG/M2, UNK
     Route: 042
     Dates: start: 20161112, end: 20161116
  3. REVLIMID [Concomitant]
     Active Substance: LENALIDOMIDE
     Indication: PLASMA CELL MYELOMA
     Dosage: 25 MG, Q4WK, D1-21
     Dates: start: 20160112, end: 20161205
  4. DEXAMETHASONE. [Concomitant]
     Active Substance: DEXAMETHASONE
     Indication: PLASMA CELL MYELOMA
     Dosage: UNK
     Dates: start: 201601

REACTIONS (13)
  - Weight increased [Unknown]
  - Blood calcium decreased [Unknown]
  - Blood bicarbonate increased [Unknown]
  - Hepatomegaly [Unknown]
  - Ascites [Unknown]
  - Blood chloride increased [Unknown]
  - White blood cell count decreased [Unknown]
  - Pleural effusion [Unknown]
  - Cardiac failure [Not Recovered/Not Resolved]
  - Intracardiac thrombus [Unknown]
  - Fatigue [Unknown]
  - Congestive cardiomyopathy [Unknown]
  - Blood urea increased [Unknown]

NARRATIVE: CASE EVENT DATE: 20161206
